FAERS Safety Report 25364253 (Version 1)
Quarter: 2025Q2

REPORT INFORMATION
  Report Type: Spontaneous
  Country: US (occurrence: None)
  Receive Date: 20250524
  Receipt Date: 20250524
  Transmission Date: 20250716
  Serious: Yes (Hospitalization)
  Sender: FDA-CTU
  Company Number: None

PATIENT
  Sex: Female

DRUGS (1)
  1. ENBREL [Suspect]
     Active Substance: ETANERCEPT
     Indication: Rheumatoid arthritis
     Route: 058
     Dates: start: 20240223

REACTIONS (5)
  - Haemoglobin decreased [None]
  - Urinary tract infection [None]
  - Therapy interrupted [None]
  - Joint swelling [None]
  - Rheumatoid arthritis [None]
